FAERS Safety Report 7341427 (Version 36)
Quarter: 2015Q1

REPORT INFORMATION
  Report Type: Report from Study
  Country: CA (occurrence: CA)
  Receive Date: 20100401
  Receipt Date: 20150102
  Transmission Date: 20150721
  Serious: Yes (Other)
  Sender: FDA-Public Use
  Company Number: PHHY2010CA19115

PATIENT
  Age: 71 Year
  Sex: Female
  Weight: 61 kg

DRUGS (7)
  1. SANDOSTATIN LAR DEPOT [Suspect]
     Active Substance: OCTREOTIDE ACETATE
     Dosage: 60 MG, QMO
     Route: 030
  2. SANDOSTATIN LAR DEPOT [Suspect]
     Active Substance: OCTREOTIDE ACETATE
     Dosage: 60 MG, EVERY 4 WEEKS
     Route: 030
  3. SANDOSTATIN LAR DEPOT [Suspect]
     Active Substance: OCTREOTIDE ACETATE
     Dosage: 60 MG, EVERY 3 WEEKS
     Route: 030
  4. GASTROLYTE [Concomitant]
     Indication: PRODUCT USED FOR UNKNOWN INDICATION
     Route: 065
  5. SANDOSTATIN LAR DEPOT [Suspect]
     Active Substance: OCTREOTIDE ACETATE
     Dosage: 60 MG, EVERY 4 WEEKS
     Route: 030
  6. ENSURE [Concomitant]
     Active Substance: AMINO ACIDS\DEXTROSE\ELECTROLYTES NOS\SOYBEAN OIL\VITAMINS
     Indication: PRODUCT USED FOR UNKNOWN INDICATION
     Route: 065
  7. SANDOSTATIN LAR DEPOT [Suspect]
     Active Substance: OCTREOTIDE ACETATE
     Indication: METASTATIC CARCINOID TUMOUR
     Dosage: 90 MG EVERY 4 WEEKS
     Route: 030
     Dates: start: 20081230

REACTIONS (22)
  - Nasopharyngitis [Unknown]
  - Abdominal distension [Recovering/Resolving]
  - Lethargy [Unknown]
  - General physical health deterioration [Unknown]
  - Flushing [Not Recovered/Not Resolved]
  - Oedema peripheral [Recovering/Resolving]
  - Discomfort [Unknown]
  - Heart rate decreased [Unknown]
  - Diarrhoea [Recovering/Resolving]
  - Stress [Recovering/Resolving]
  - Energy increased [Unknown]
  - Fatigue [Unknown]
  - Flatulence [Unknown]
  - Blood pressure decreased [Unknown]
  - Weight decreased [Unknown]
  - Nausea [Recovered/Resolved]
  - Asthenia [Unknown]
  - Underdose [Unknown]
  - Localised oedema [Unknown]
  - Metastases to liver [Recovering/Resolving]
  - Wrong technique in drug usage process [Unknown]
  - Decreased appetite [Recovering/Resolving]

NARRATIVE: CASE EVENT DATE: 2014
